FAERS Safety Report 5202096-6 (Version None)
Quarter: 2007Q1

REPORT INFORMATION
  Report Type: 
  Country: None (occurrence: None)
  Receive Date: 20070109
  Receipt Date: 20070104
  Transmission Date: 20070707
  Serious: Yes (Hospitalization)
  Sender: FDA-Public Use
  Company Number: CN-JNJFOC-20061201629

PATIENT
  Age: 50 Year
  Sex: Male

DRUGS (1)
  1. SPORANOX [Suspect]
     Indication: SYSTEMIC MYCOSIS
     Route: 042

REACTIONS (3)
  - BLOOD CREATININE INCREASED [None]
  - BLOOD UREA INCREASED [None]
  - PHARMACEUTICAL PRODUCT COMPLAINT [None]
